FAERS Safety Report 4786482-4 (Version None)
Quarter: 2005Q3

REPORT INFORMATION
  Report Type: 
  Country: None (occurrence: None)
  Receive Date: 20050927
  Receipt Date: 20050805
  Transmission Date: 20060218
  Serious: No
  Sender: FDA-Public Use
  Company Number: USA0507103104

PATIENT
  Age: 60 Year
  Sex: Female

DRUGS (2)
  1. STRATTERA [Suspect]
     Indication: ATTENTION DEFICIT/HYPERACTIVITY DISORDER
     Dosage: 18 MG IN THE MORNING
     Dates: start: 20030101
  2. PROZAC [Suspect]
     Indication: DEPRESSION
     Dosage: 20 MG EVERY OTHER DAY
     Dates: start: 19900701

REACTIONS (5)
  - DIZZINESS [None]
  - DRUG INTERACTION [None]
  - EXCITABILITY [None]
  - FEELING ABNORMAL [None]
  - HYPERHIDROSIS [None]
